FAERS Safety Report 9163924 (Version 1)
Quarter: 2013Q1

REPORT INFORMATION
  Report Type: Spontaneous
  Country: GB (occurrence: GB)
  Receive Date: 20130314
  Receipt Date: 20130314
  Transmission Date: 20140127
  Serious: Yes (Other)
  Sender: FDA-Public Use
  Company Number: CHNY2013GB000783

PATIENT
  Age: 61 Year
  Sex: Female

DRUGS (2)
  1. OTRIVIN [Suspect]
     Indication: BRONCHITIS
     Dosage: 1 DF, UNK
     Route: 045
     Dates: start: 201206, end: 201206
  2. LIOTHYRONINE SODIUM [Concomitant]

REACTIONS (7)
  - Visual impairment [Recovered/Resolved]
  - Malaise [Recovered/Resolved]
  - Dizziness [Recovered/Resolved]
  - Dyspnoea [Unknown]
  - Chest discomfort [Unknown]
  - Nausea [Recovered/Resolved]
  - Diplopia [Unknown]
